FAERS Safety Report 17508265 (Version 2)
Quarter: 2020Q2

REPORT INFORMATION
  Report Type: Spontaneous
  Country: US (occurrence: US)
  Receive Date: 20200306
  Receipt Date: 20200413
  Transmission Date: 20200713
  Serious: Yes (Other)
  Sender: FDA-Public Use
  Company Number: US-ALVOGEN-2020-ALVOGEN-107800

PATIENT
  Age: 68 Year
  Sex: Female

DRUGS (1)
  1. NITROFURANTOIN MONOHYDRATE MACROCRYSTALS [Suspect]
     Active Substance: NITROFURANTOIN\NITROFURANTOIN MONOHYDRATE
     Indication: URINARY TRACT INFECTION
     Dates: start: 20200303, end: 20200304

REACTIONS (3)
  - Cough [Not Recovered/Not Resolved]
  - Drug ineffective [Unknown]
  - Haemorrhage urinary tract [Not Recovered/Not Resolved]

NARRATIVE: CASE EVENT DATE: 20200303
